FAERS Safety Report 24214348 (Version 5)
Quarter: 2025Q3

REPORT INFORMATION
  Report Type: Report from Study
  Country: US (occurrence: US)
  Receive Date: 20240815
  Receipt Date: 20250814
  Transmission Date: 20251021
  Serious: Yes (Hospitalization)
  Sender: CSL BEHRING
  Company Number: US-BEH-2024175449

PATIENT
  Age: 89 Year
  Sex: Male
  Weight: 99.77 kg

DRUGS (2)
  1. HIZENTRA [Suspect]
     Active Substance: HUMAN IMMUNOGLOBULIN G
     Indication: Product used for unknown indication
     Dosage: 40 G, BIW
     Route: 065
  2. HIZENTRA [Suspect]
     Active Substance: HUMAN IMMUNOGLOBULIN G
     Indication: Product used for unknown indication
     Dosage: 40 G, BIW
     Route: 065

REACTIONS (6)
  - Hospitalisation [Unknown]
  - COVID-19 [Unknown]
  - Sepsis [Unknown]
  - Pneumonia [Unknown]
  - Product dose omission issue [Unknown]
  - Productive cough [Unknown]

NARRATIVE: CASE EVENT DATE: 20240708
